FAERS Safety Report 24687111 (Version 1)
Quarter: 2024Q4

REPORT INFORMATION
  Report Type: Report from Study
  Country: US (occurrence: US)
  Receive Date: 20241202
  Receipt Date: 20241202
  Transmission Date: 20250115
  Serious: No
  Sender: INCYTE
  Company Number: US-EVENT-000488

PATIENT

DRUGS (1)
  1. JAKAFI [Suspect]
     Active Substance: RUXOLITINIB
     Dosage: UNK
     Route: 048

REACTIONS (5)
  - Fungal infection [Unknown]
  - Nasopharyngitis [Unknown]
  - Motion sickness [Unknown]
  - Dizziness [Unknown]
  - Cystitis [Unknown]
